FAERS Safety Report 4465923-6 (Version None)
Quarter: 2004Q3

REPORT INFORMATION
  Report Type: 
  Country: None (occurrence: None)
  Receive Date: 20040930
  Receipt Date: 20040930
  Transmission Date: 20050211
  Serious: Yes (Disabling)
  Sender: FDA-Public Use
  Company Number: None

PATIENT
  Age: 26 Year
  Sex: Female
  Weight: 65.7716 kg

DRUGS (1)
  1. DEPO-PROVERA [Suspect]
     Dates: start: 19991201, end: 20020101

REACTIONS (2)
  - ARTHRALGIA [None]
  - ILIOTIBIAL BAND SYNDROME [None]
